FAERS Safety Report 8251931-6 (Version None)
Quarter: 2012Q2

REPORT INFORMATION
  Report Type: 
  Country: None (occurrence: None)
  Receive Date: 20120402
  Receipt Date: 20120322
  Transmission Date: 20120825
  Serious: Yes (Other)
  Sender: FDA-Public Use
  Company Number: JP-FRI-1000029135

PATIENT
  Sex: Female

DRUGS (6)
  1. LITHIUM CARBONATE [Concomitant]
     Dosage: 400 MG
     Route: 048
  2. NIZATIDINE [Concomitant]
     Dosage: 150 MG
     Route: 048
  3. ZOLPIDEM [Concomitant]
     Dosage: 10 MG
     Route: 048
  4. LUDIOMIL [Concomitant]
     Dosage: 20 MG
     Route: 048
  5. GOODMIN [Concomitant]
     Dosage: 0.25 MG
     Route: 048
  6. LEXAPRO [Suspect]
     Dosage: 10 MG
     Route: 048
     Dates: start: 20120116, end: 20120213

REACTIONS (4)
  - LOSS OF CONSCIOUSNESS [None]
  - HEADACHE [None]
  - PHOTOPSIA [None]
  - FEELING ABNORMAL [None]
